FAERS Safety Report 4332275-1 (Version None)
Quarter: 2004Q1

REPORT INFORMATION
  Report Type: 
  Country: None (occurrence: None)
  Receive Date: 20040331
  Receipt Date: 20040324
  Transmission Date: 20041129
  Serious: Yes (Hospitalization)
  Sender: FDA-Public Use
  Company Number: EWC040338206

PATIENT
  Age: 44 Year
  Sex: Female
  Weight: 46 kg

DRUGS (9)
  1. GEMCITABINE HYDROCHLORIDE-IV (GEMCITABINE) [Suspect]
     Indication: NON-SMALL CELL LUNG CANCER
     Dosage: 1400 MG/M2/3; OTHER
     Route: 050
     Dates: start: 20030814, end: 20031218
  2. CISPLATIN [Concomitant]
  3. DEXAN [Concomitant]
  4. KYTRIL [Concomitant]
  5. NOVAMIN (PROCHLORPERAZINE) [Concomitant]
  6. ANACID [Concomitant]
  7. TRANEXAMIC ACID [Concomitant]
  8. PHENYTOIN SODIUM [Concomitant]
  9. CODEINE PHOSPHATE [Concomitant]

REACTIONS (11)
  - ANAEMIA [None]
  - APHASIA [None]
  - ASTHENIA [None]
  - CONVULSION [None]
  - DISEASE RECURRENCE [None]
  - DYSPHAGIA [None]
  - ISCHAEMIC STROKE [None]
  - LOSS OF CONSCIOUSNESS [None]
  - METABOLIC ENCEPHALOPATHY [None]
  - THROMBOCYTOPENIA [None]
  - VAGINAL HAEMORRHAGE [None]
